FAERS Safety Report 9236535 (Version 1)
Quarter: 2013Q2

REPORT INFORMATION
  Report Type: Spontaneous
  Country: MX (occurrence: MX)
  Receive Date: 20130417
  Receipt Date: 20130417
  Transmission Date: 20140414
  Serious: Yes (Other)
  Sender: FDA-Public Use
  Company Number: MX-PFIZER INC-2012316662

PATIENT
  Age: 36 Year
  Sex: Female

DRUGS (2)
  1. DOXORUBICIN HCL [Suspect]
     Indication: RHABDOMYOSARCOMA
     Dosage: UNK
     Dates: start: 201101, end: 201103
  2. CISPLATIN [Suspect]
     Dosage: UNK
     Dates: start: 201101, end: 201103

REACTIONS (3)
  - Myocardial infarction [Unknown]
  - Cardiomyopathy [Unknown]
  - Arrhythmia [Unknown]
